FAERS Safety Report 6564828-4 (Version None)
Quarter: 2010Q1

REPORT INFORMATION
  Report Type: 
  Country: None (occurrence: None)
  Receive Date: 20100201
  Receipt Date: 20100120
  Transmission Date: 20100710
  Serious: Yes (Hospitalization)
  Sender: FDA-Public Use
  Company Number: US-PFIZER INC-2009305192

PATIENT
  Sex: Female
  Weight: 81 kg

DRUGS (13)
  1. SUNITINIB MALATE [Suspect]
     Indication: NON-SMALL CELL LUNG CANCER METASTATIC
     Dosage: 37.5 MG, 1X/DAY
     Route: 048
     Dates: start: 20091116, end: 20091201
  2. ACETYLSALICYLIC ACID [Concomitant]
     Dosage: UNK
     Dates: start: 20040101
  3. LOPERAMIDE HYDROCHLORIDE [Concomitant]
     Dosage: UNK
  4. ISOSORBIDE DINITRATE [Concomitant]
     Dosage: UNK
     Dates: start: 20040101
  5. OMEPRAZOLE [Concomitant]
     Dosage: UNK
     Dates: start: 20060101
  6. TOPROL-XL [Concomitant]
     Dosage: UNK
     Dates: start: 20040101
  7. NITROLINGUAL [Concomitant]
     Dosage: UNK
     Dates: start: 20040101
  8. LEVETIRACETAM [Concomitant]
  9. LIPITOR [Concomitant]
  10. LEXAPRO [Concomitant]
     Dosage: UNK
     Dates: start: 20050101
  11. AMLODIPINE [Concomitant]
     Dosage: UNK
     Dates: start: 20040101
  12. COZAAR [Concomitant]
     Dosage: UNK
     Dates: start: 20040101
  13. ENALAPRIL [Concomitant]
     Dosage: UNK
     Dates: start: 20090101

REACTIONS (3)
  - DIARRHOEA [None]
  - MICROANGIOPATHIC HAEMOLYTIC ANAEMIA [None]
  - THROMBOCYTOPENIA [None]
